FAERS Safety Report 4719026-3 (Version None)
Quarter: 2005Q3

REPORT INFORMATION
  Report Type: 
  Country: None (occurrence: None)
  Receive Date: 20050719
  Receipt Date: 20050706
  Transmission Date: 20060218
  Serious: Yes (Life-Threatening, Hospitalization)
  Sender: FDA-Public Use
  Company Number: IT-2005-012644

PATIENT
  Age: 79 Year
  Sex: Male

DRUGS (2)
  1. ULTRAVIST 300 [Suspect]
     Indication: ARTERIOGRAM
     Dosage: 50 ML, 2 DOSES, INTRA-ARTERIAL
     Route: 013
     Dates: start: 20050701, end: 20050701
  2. LIDOCAINE [Concomitant]

REACTIONS (8)
  - ANXIETY [None]
  - BRADYCARDIA [None]
  - CYANOSIS [None]
  - FLUSHING [None]
  - HEART RATE INCREASED [None]
  - HYPERHIDROSIS [None]
  - INTRACRANIAL INJURY [None]
  - OXYGEN SATURATION DECREASED [None]
